FAERS Safety Report 16837253 (Version 1)
Quarter: 2019Q3

REPORT INFORMATION
  Report Type: Spontaneous
  Country: BR (occurrence: BR)
  Receive Date: 20190923
  Receipt Date: 20190923
  Transmission Date: 20191005
  Serious: No
  Sender: FDA-Public Use
  Company Number: BR-NOVEN PHARMACEUTICALS, INC.-BR2019000412

PATIENT

DRUGS (1)
  1. ESTRADIOL/NORETHISTERONE ACETATE [Suspect]
     Active Substance: ESTRADIOL\NORETHINDRONE ACETATE
     Indication: HOT FLUSH
     Dosage: UNK, UNKNOWN
     Route: 062
     Dates: start: 201810

REACTIONS (6)
  - Disease recurrence [Unknown]
  - Product adhesion issue [Unknown]
  - Hot flush [Unknown]
  - Drug ineffective [Unknown]
  - Heat exhaustion [Unknown]
  - Haemorrhage [Unknown]
